FAERS Safety Report 9537859 (Version 2)
Quarter: 2013Q4

REPORT INFORMATION
  Report Type: Spontaneous
  Country: US (occurrence: US)
  Receive Date: 20130919
  Receipt Date: 20131024
  Transmission Date: 20140711
  Serious: Yes (Other)
  Sender: FDA-Public Use
  Company Number: US-PFIZER INC-2013267341

PATIENT
  Age: 52 Year
  Sex: Female
  Weight: 61.2 kg

DRUGS (11)
  1. ADVIL [Suspect]
     Indication: TRIGEMINAL NEURALGIA
     Dosage: UNK
     Dates: end: 201309
  2. ADVIL [Suspect]
     Indication: HEADACHE
  3. ADVIL [Suspect]
     Indication: PAIN
  4. ADVIL [Suspect]
     Indication: PAIN
  5. ADVIL [Suspect]
     Indication: DYSMENORRHOEA
  6. ADVIL [Suspect]
     Indication: JOINT DISLOCATION
  7. ADVIL [Suspect]
     Indication: CAESAREAN SECTION
  8. ADVIL [Suspect]
     Indication: MULTIPLE FRACTURES
  9. ADVIL [Suspect]
     Indication: JOINT INJURY
  10. CODEINE PHOSPHATE [Suspect]
     Dosage: UNK
  11. VICODIN [Suspect]
     Dosage: UNK

REACTIONS (4)
  - Nephropathy [Unknown]
  - Foot fracture [Unknown]
  - Drug ineffective [Unknown]
  - Glomerular filtration rate decreased [Unknown]
